FAERS Safety Report 6142626-3 (Version None)
Quarter: 2009Q2

REPORT INFORMATION
  Report Type: 
  Country: None (occurrence: None)
  Receive Date: 20090403
  Receipt Date: 20071203
  Transmission Date: 20091009
  Serious: Yes (Hospitalization, Other)
  Sender: FDA-Public Use
  Company Number: US-ASTRAZENECA-2006UW27325

PATIENT
  Age: 16585 Day
  Sex: Female
  Weight: 108.9 kg

DRUGS (36)
  1. SEROQUEL [Suspect]
     Indication: SCHIZOPHRENIA
     Dosage: 200 MG TO 400 MG
     Route: 048
     Dates: start: 20030324, end: 20030607
  2. SEROQUEL [Suspect]
     Indication: BIPOLAR DISORDER
     Dosage: 200 MG TO 400 MG
     Route: 048
     Dates: start: 20030324, end: 20030607
  3. SEROQUEL [Suspect]
     Dosage: 200 MG TO 400 MG
     Route: 048
     Dates: start: 20030618, end: 20050319
  4. SEROQUEL [Suspect]
     Dosage: 200 MG TO 400 MG
     Route: 048
     Dates: start: 20030618, end: 20050319
  5. SEROQUEL [Suspect]
     Dosage: 100-600MG
     Route: 048
     Dates: start: 20010618
  6. SEROQUEL [Suspect]
     Dosage: 100-600MG
     Route: 048
     Dates: start: 20010618
  7. HALDOL [Concomitant]
     Dates: start: 19890101
  8. RISPERDAL [Concomitant]
     Route: 048
     Dates: start: 20030101
  9. THORAZINE [Concomitant]
     Dates: start: 19890101
  10. TRILAFON [Concomitant]
     Dates: start: 19920101
  11. ACTOS [Concomitant]
  12. ZOCOR [Concomitant]
  13. LIPITOR [Concomitant]
  14. ASPIRIN [Concomitant]
  15. ATIVAN [Concomitant]
  16. COGENTIN [Concomitant]
  17. BENADRYL [Concomitant]
  18. PROVENTIL [Concomitant]
  19. PAXIL [Concomitant]
  20. ZOLOFT [Concomitant]
  21. NORVASC [Concomitant]
  22. AVANDIA [Concomitant]
  23. BENICAR [Concomitant]
  24. DIPRIVAN [Concomitant]
  25. TRILEPTAL [Concomitant]
  26. PLENDIL [Concomitant]
  27. OXYCODONE HCL [Concomitant]
  28. IMIPRAMINE [Concomitant]
  29. KETOCONAZOLE [Concomitant]
  30. BACITRACIN [Concomitant]
  31. FUROSEMIDE [Concomitant]
  32. NITROGLYCERIN [Concomitant]
  33. ISOSORBIDE [Concomitant]
  34. ATENOLOL [Concomitant]
  35. METFORMIN HCL [Concomitant]
  36. RANITIDINE [Concomitant]

REACTIONS (38)
  - ABDOMINAL PAIN [None]
  - AGGRESSION [None]
  - AGITATION [None]
  - BIPOLAR DISORDER [None]
  - CHRONIC OBSTRUCTIVE PULMONARY DISEASE [None]
  - COMMUNICATION DISORDER [None]
  - CONFUSIONAL STATE [None]
  - COUGH [None]
  - DEPRESSION [None]
  - DIABETES MELLITUS [None]
  - DIZZINESS [None]
  - DYSPNOEA [None]
  - FATIGUE [None]
  - GASTROOESOPHAGEAL REFLUX DISEASE [None]
  - HALLUCINATION [None]
  - HEAD INJURY [None]
  - HYPERGLYCAEMIA [None]
  - HYPERLIPIDAEMIA [None]
  - HYPERTENSION [None]
  - HYPOGLYCAEMIA [None]
  - IRRITABILITY [None]
  - JUDGEMENT IMPAIRED [None]
  - MOOD ALTERED [None]
  - MOUTH BREATHING [None]
  - NERVOUSNESS [None]
  - OBESITY [None]
  - OEDEMA PERIPHERAL [None]
  - POLLAKIURIA [None]
  - PSYCHOTIC DISORDER [None]
  - PYREXIA [None]
  - SCHIZOAFFECTIVE DISORDER [None]
  - SCHIZOPHRENIA [None]
  - SOMNOLENCE [None]
  - SUICIDAL IDEATION [None]
  - SYNCOPE [None]
  - UPPER RESPIRATORY TRACT INFECTION [None]
  - URINARY INCONTINENCE [None]
  - URINARY TRACT INFECTION [None]
